FAERS Safety Report 12385362 (Version 1)
Quarter: 2016Q2

REPORT INFORMATION
  Report Type: Report from Study
  Country: CA (occurrence: CA)
  Receive Date: 20160519
  Receipt Date: 20160519
  Transmission Date: 20160815
  Serious: Yes (Hospitalization)
  Sender: FDA-Public Use
  Company Number: CA-HLSUS-2016-CA-000134

PATIENT
  Sex: Male

DRUGS (9)
  1. PANTOLOC [Concomitant]
     Active Substance: PANTOPRAZOLE SODIUM
  2. CLOZARIL [Suspect]
     Active Substance: CLOZAPINE
     Dosage: 200 MG QD
     Route: 048
     Dates: start: 20151023
  3. SYNTHROID [Concomitant]
     Active Substance: LEVOTHYROXINE SODIUM
     Dosage: 0.1 MCG
  4. FENO-SUPER [Concomitant]
     Dosage: 1500 MG QD
  5. VIAGRA OR CIALIS [Concomitant]
  6. EPIVAL [Concomitant]
     Active Substance: DIVALPROEX SODIUM
     Dosage: 1500 MG QD
  7. COLACE [Concomitant]
     Active Substance: DOCUSATE SODIUM
  8. ATROPINE DROPS [Concomitant]
  9. PERGALAX [Concomitant]
     Dosage: PRN

REACTIONS (3)
  - Disorientation [None]
  - Pancreatitis [Unknown]
  - Confusional state [None]
